FAERS Safety Report 5934227-4 (Version None)
Quarter: 2008Q4

REPORT INFORMATION
  Report Type: 
  Country: None (occurrence: None)
  Receive Date: 20081029
  Receipt Date: 20081021
  Transmission Date: 20090506
  Serious: Yes (Other)
  Sender: FDA-Public Use
  Company Number: US-ASTRAZENECA-2008UW23375

PATIENT
  Sex: Male

DRUGS (4)
  1. TOPROL-XL [Suspect]
     Indication: HYPERTENSION
     Route: 048
  2. CLEMASTINE FUMARATE [Concomitant]
  3. ASPIRIN [Concomitant]
  4. LOVZA [Concomitant]

REACTIONS (1)
  - ANAPHYLACTIC REACTION [None]
